FAERS Safety Report 6968936-5 (Version None)
Quarter: 2010Q3

REPORT INFORMATION
  Report Type: 
  Country: None (occurrence: None)
  Receive Date: 20100907
  Receipt Date: 20100831
  Transmission Date: 20110219
  Serious: Yes (Disabling, Other)
  Sender: FDA-Public Use
  Company Number: US-PFIZER INC-2010105835

PATIENT
  Sex: Female

DRUGS (1)
  1. CARDURA [Suspect]
     Indication: BLOOD PRESSURE INCREASED
     Dosage: 4 MG, UNK

REACTIONS (2)
  - BLOOD PRESSURE INCREASED [None]
  - DIZZINESS [None]
